FAERS Safety Report 8874993 (Version 1)
Quarter: 2012Q4

REPORT INFORMATION
  Report Type: 
  Country: US (occurrence: US)
  Receive Date: 20121029
  Receipt Date: 20121029
  Transmission Date: 20130627
  Serious: No
  Sender: FDA-Public Use
  Company Number: US-009507513-1210USA009692

PATIENT
  Age: 45 Year
  Sex: Male

DRUGS (1)
  1. PROPECIA [Suspect]
     Indication: ALOPECIA
     Dosage: 1 mg, qd
     Route: 048
     Dates: start: 2004, end: 20120907

REACTIONS (2)
  - Ejaculation failure [Not Recovered/Not Resolved]
  - Ejaculation disorder [Not Recovered/Not Resolved]
